FAERS Safety Report 16659909 (Version 1)
Quarter: 2019Q3

REPORT INFORMATION
  Report Type: Spontaneous
  Country: FR (occurrence: FR)
  Receive Date: 20190802
  Receipt Date: 20190802
  Transmission Date: 20191004
  Serious: No
  Sender: FDA-Public Use
  Company Number: FR-BEH-2019104763

PATIENT
  Age: 52 Year
  Sex: Male
  Weight: 97 kg

DRUGS (18)
  1. PRIVIGEN [Suspect]
     Active Substance: HUMAN IMMUNOGLOBULIN G
     Dosage: UNK
     Route: 041
  2. MAG 2 [MAGNESIUM CARBONATE] [Concomitant]
     Active Substance: MAGNESIUM CARBONATE
     Route: 048
     Dates: start: 20190619
  3. XATRAL [Concomitant]
     Active Substance: ALFUZOSIN
     Route: 048
     Dates: start: 20190621, end: 20190626
  4. CYANOCOBALAMINE [Concomitant]
     Active Substance: CYANOCOBALAMIN
     Dosage: 250 MICROGRAM, PRN
     Route: 048
     Dates: start: 20190614
  5. PRIVIGEN [Suspect]
     Active Substance: HUMAN IMMUNOGLOBULIN G
     Dosage: UNK
     Route: 041
  6. TARDYFERON [Concomitant]
     Active Substance: FERROUS SULFATE
     Dosage: 80 MILLIGRAM, PRN
     Route: 048
     Dates: start: 20190614
  7. ACIDE FOLIQUE [Concomitant]
     Active Substance: FOLIC ACID
     Route: 048
     Dates: start: 20190612
  8. PYRIDOXINE [PYRIDOXINE HYDROCHLORIDE] [Concomitant]
     Dosage: 500 MILLIGRAM, PRN
     Route: 048
     Dates: start: 20190612, end: 20190625
  9. AMIKACINE [AMIKACIN SULFATE] [Concomitant]
     Active Substance: AMIKACIN SULFATE
     Route: 042
     Dates: start: 20190615, end: 20190617
  10. DIFFU K [Concomitant]
     Active Substance: POTASSIUM CHLORIDE
     Dosage: 1200 MILLIGRAM, PRN
     Route: 048
     Dates: start: 20190615
  11. NOZINAN [LEVOMEPROMAZINE] [Concomitant]
     Active Substance: LEVOMEPROMAZINE
     Indication: SCHIZOPHRENIA
     Route: 048
  12. PRIVIGEN [Suspect]
     Active Substance: HUMAN IMMUNOGLOBULIN G
     Indication: ESCHERICHIA INFECTION
     Dosage: 1 DOSAGE FORM
     Route: 041
     Dates: start: 20190619, end: 20190619
  13. FUROSEMIDE. [Concomitant]
     Active Substance: FUROSEMIDE
     Route: 048
     Dates: start: 20190614
  14. PRIVIGEN [Suspect]
     Active Substance: HUMAN IMMUNOGLOBULIN G
     Dosage: UNK
     Route: 041
  15. HALDOL [Concomitant]
     Active Substance: HALOPERIDOL
     Indication: SCHIZOPHRENIA
     Route: 030
  16. PANTOPRAZOLE [Concomitant]
     Active Substance: PANTOPRAZOLE
     Route: 048
     Dates: start: 20190622, end: 20190626
  17. HYDROSOL POLYVITAMINE [Concomitant]
     Active Substance: VITAMINS
     Route: 048
     Dates: start: 20190614
  18. LEPTICUR [Concomitant]
     Active Substance: TROPATEPINE HYDROCHLORIDE
     Route: 048

REACTIONS (3)
  - No adverse event [Unknown]
  - Rash papular [Recovered/Resolved]
  - Product use in unapproved indication [Unknown]

NARRATIVE: CASE EVENT DATE: 20190619
